FAERS Safety Report 11527942 (Version 2)
Quarter: 2015Q4

REPORT INFORMATION
  Report Type: Report from Study
  Country: US (occurrence: US)
  Receive Date: 20150920
  Receipt Date: 20151211
  Transmission Date: 20160304
  Serious: Yes (Hospitalization)
  Sender: FDA-Public Use
  Company Number: PHEH2015US018383

PATIENT
  Sex: Female

DRUGS (2)
  1. TOBI [Suspect]
     Active Substance: TOBRAMYCIN
     Indication: PRODUCT USED FOR UNKNOWN INDICATION
     Route: 065
     Dates: start: 20120723
  2. TOBI [Suspect]
     Active Substance: TOBRAMYCIN
     Route: 065
     Dates: start: 20150323

REACTIONS (2)
  - Respiratory acidosis [Unknown]
  - Pulmonary function test decreased [Unknown]
